FAERS Safety Report 23633235 (Version 1)
Quarter: 2024Q1

REPORT INFORMATION
  Report Type: Spontaneous
  Country: US (occurrence: None)
  Receive Date: 20240314
  Receipt Date: 20240314
  Transmission Date: 20240410
  Serious: Yes (Life-Threatening, Hospitalization, Disabling, Other)
  Sender: FDA-Public Use
  Company Number: None

PATIENT
  Age: 61 Year
  Sex: Male
  Weight: 85.5 kg

DRUGS (17)
  1. CLONAZEPAM [Suspect]
     Active Substance: CLONAZEPAM
     Indication: Nerve injury
     Dosage: OTHER QUANTITY : 3 TABLET(S);?FREQUENCY : 3 TIMES A DAY;?
     Route: 048
     Dates: start: 19971125, end: 20230119
  2. CLONAZEPAM [Suspect]
     Active Substance: CLONAZEPAM
     Indication: Pain
  3. GABAPENTIN [Concomitant]
     Active Substance: GABAPENTIN
  4. LEXAPRO [Concomitant]
     Active Substance: ESCITALOPRAM OXALATE
  5. LISINOPRIL [Concomitant]
     Active Substance: LISINOPRIL
  6. SUBOXONE [Concomitant]
     Active Substance: BUPRENORPHINE HYDROCHLORIDE\NALOXONE HYDROCHLORIDE
  7. KLONOPIN [Concomitant]
     Active Substance: CLONAZEPAM
  8. Protocane [Concomitant]
  9. LIDOCAINE [Concomitant]
     Active Substance: LIDOCAINE
  10. RITALIN [Concomitant]
     Active Substance: METHYLPHENIDATE HYDROCHLORIDE
  11. REMERON [Concomitant]
     Active Substance: MIRTAZAPINE
  12. TRAZODONE [Concomitant]
     Active Substance: TRAZODONE HYDROCHLORIDE
  13. MELATONIN [Concomitant]
     Active Substance: MELATONIN
  14. VITAMINS [Concomitant]
     Active Substance: VITAMINS
  15. ASPIRIN [Suspect]
     Active Substance: ASPIRIN
  16. VALIUM [Suspect]
     Active Substance: DIAZEPAM
  17. VICKS NYQUIL [Suspect]
     Active Substance: ACETAMINOPHEN\DEXTROMETHORPHAN HYDROBROMIDE\DOXYLAMINE SUCCINATE

REACTIONS (22)
  - Suicidal ideation [None]
  - Insomnia [None]
  - Dyskinesia [None]
  - Hyperhidrosis [None]
  - Mental disorder [None]
  - Thinking abnormal [None]
  - Irritability [None]
  - Intentional self-injury [None]
  - Skin laceration [None]
  - Brain fog [None]
  - Arthralgia [None]
  - Myalgia [None]
  - Withdrawal syndrome [None]
  - Muscle atrophy [None]
  - Peripheral swelling [None]
  - Peripheral swelling [None]
  - Weight decreased [None]
  - Tinnitus [None]
  - Hypoaesthesia [None]
  - Abnormal dreams [None]
  - Tremor [None]
  - Drug dependence [None]

NARRATIVE: CASE EVENT DATE: 20240207
